FAERS Safety Report 6093046-1 (Version None)
Quarter: 2009Q1

REPORT INFORMATION
  Report Type: 
  Country: None (occurrence: None)
  Receive Date: 20090224
  Receipt Date: 20090209
  Transmission Date: 20090719
  Serious: Yes (Hospitalization)
  Sender: FDA-Public Use
  Company Number: 2009S1002224

PATIENT
  Sex: Female

DRUGS (8)
  1. BISOPROLOL FUMARATE [Suspect]
     Indication: ATRIAL FIBRILLATION
     Dosage: 1.25 MG; 5 MG; 2.5 MG
     Dates: start: 20080707, end: 20080819
  2. BISOPROLOL FUMARATE [Suspect]
     Indication: HYPERTENSION
     Dosage: 1.25 MG; 5 MG; 2.5 MG
     Dates: start: 20080707, end: 20080819
  3. FUROSEMIDE [Concomitant]
  4. LEVOTHYROXINE SODIUM [Concomitant]
  5. QUININE SULPHATE [Concomitant]
  6. RANITIDINE [Concomitant]
  7. SIMVASTATIN [Concomitant]
  8. WARFARIN SODIUM [Concomitant]

REACTIONS (2)
  - CONFUSIONAL STATE [None]
  - HALLUCINATION, VISUAL [None]
